FAERS Safety Report 4770811-1 (Version None)
Quarter: 2005Q3

REPORT INFORMATION
  Report Type: 
  Country: None (occurrence: None)
  Receive Date: 20050914
  Receipt Date: 20050902
  Transmission Date: 20060218
  Serious: Yes (Life-Threatening, Hospitalization, Other)
  Sender: FDA-Public Use
  Company Number: 2005114013

PATIENT
  Age: 75 Year
  Sex: Female

DRUGS (9)
  1. LYRICA [Suspect]
     Indication: NEUROPATHIC PAIN
     Dosage: 300 MG (150 MG, 2 IN 1 D), ORAL
     Route: 048
     Dates: start: 20050615, end: 20050628
  2. PANTOPRAZOLE SODIUM [Concomitant]
  3. SEREPAX (OXAZEPAM) [Concomitant]
  4. KARVEZIDE (HYDROCHLOROTHIAZIDE, IRBESARTAN) [Concomitant]
  5. LASIX [Concomitant]
  6. LIPITOR [Concomitant]
  7. MOBIC [Concomitant]
  8. PREDNISONE [Concomitant]
  9. NEURONTIN [Concomitant]

REACTIONS (1)
  - PULMONARY EMBOLISM [None]
